FAERS Safety Report 8447215-3 (Version None)
Quarter: 2012Q2

REPORT INFORMATION
  Report Type: 
  Country: None (occurrence: None)
  Receive Date: 20120619
  Receipt Date: 20120615
  Transmission Date: 20120825
  Serious: No
  Sender: FDA-Public Use
  Company Number: US-PFIZER INC-2012145051

PATIENT
  Sex: Female
  Weight: 93 kg

DRUGS (4)
  1. METFORMIN [Concomitant]
     Indication: DIABETES MELLITUS
     Dosage: UNK
  2. LANTUS [Concomitant]
     Indication: DIABETES MELLITUS
     Dosage: UNK
  3. GLIPIZIDE [Concomitant]
     Indication: DIABETES MELLITUS
     Dosage: UNK
  4. GABAPENTIN [Suspect]
     Indication: DIABETIC NEUROPATHY
     Dosage: UNK
     Dates: end: 20110101

REACTIONS (1)
  - DRUG INEFFECTIVE [None]
